FAERS Safety Report 4954014-3 (Version None)
Quarter: 2006Q1

REPORT INFORMATION
  Report Type: 
  Country: None (occurrence: None)
  Receive Date: 20060321
  Receipt Date: 20060307
  Transmission Date: 20060701
  Serious: No
  Sender: FDA-Public Use
  Company Number: 34245

PATIENT

DRUGS (1)
  1. BSS PLUS [Suspect]
     Indication: SURGERY

REACTIONS (4)
  - ANTERIOR CHAMBER DISORDER [None]
  - ANTERIOR CHAMBER FIBRIN [None]
  - EYE INFECTION INTRAOCULAR [None]
  - HYPOPYON [None]
